FAERS Safety Report 18627965 (Version 4)
Quarter: 2025Q3

REPORT INFORMATION
  Report Type: Spontaneous
  Country: EU (occurrence: EU)
  Receive Date: 20201217
  Receipt Date: 20250714
  Transmission Date: 20251020
  Serious: Yes (Life-Threatening, Hospitalization, Other)
  Sender: MYLAN
  Company Number: EU-PMCS-06972020

PATIENT
  Age: 30 Year
  Sex: Male

DRUGS (20)
  1. CLOZAPINE [Suspect]
     Active Substance: CLOZAPINE
     Indication: Bipolar disorder
  2. CLOZAPINE [Suspect]
     Active Substance: CLOZAPINE
  3. CLOZAPINE [Suspect]
     Active Substance: CLOZAPINE
  4. CLOZAPINE [Suspect]
     Active Substance: CLOZAPINE
  5. CLOZAPINE [Suspect]
     Active Substance: CLOZAPINE
  6. CLOZAPINE [Suspect]
     Active Substance: CLOZAPINE
  7. OLANZAPINE [Suspect]
     Active Substance: OLANZAPINE
     Indication: Bipolar disorder
  8. OLANZAPINE [Suspect]
     Active Substance: OLANZAPINE
  9. CLONAZEPAM [Suspect]
     Active Substance: CLONAZEPAM
     Indication: Bipolar disorder
  10. CLONAZEPAM [Suspect]
     Active Substance: CLONAZEPAM
     Indication: Neuroleptic malignant syndrome
  11. CLONAZEPAM [Suspect]
     Active Substance: CLONAZEPAM
  12. CLONAZEPAM [Suspect]
     Active Substance: CLONAZEPAM
  13. AMISULPRIDE [Suspect]
     Active Substance: AMISULPRIDE
     Indication: Bipolar disorder
  14. AMISULPRIDE [Suspect]
     Active Substance: AMISULPRIDE
     Indication: Neuroleptic malignant syndrome
  15. AMISULPRIDE [Suspect]
     Active Substance: AMISULPRIDE
  16. AMISULPRIDE [Suspect]
     Active Substance: AMISULPRIDE
  17. VALPROATE SODIUM [Suspect]
     Active Substance: VALPROATE SODIUM
     Indication: Bipolar disorder
  18. VALPROATE SODIUM [Suspect]
     Active Substance: VALPROATE SODIUM
     Indication: Neuroleptic malignant syndrome
  19. LEVOMEPROMAZINE [Suspect]
     Active Substance: LEVOMEPROMAZINE
     Indication: Bipolar disorder
  20. LEVOMEPROMAZINE [Suspect]
     Active Substance: LEVOMEPROMAZINE
     Indication: Neuroleptic malignant syndrome

REACTIONS (10)
  - Neuroleptic malignant syndrome [Recovered/Resolved]
  - Blood creatine phosphokinase increased [Recovered/Resolved]
  - Blood pressure fluctuation [Recovered/Resolved]
  - Hyperhidrosis [Recovered/Resolved]
  - Flushing [Recovered/Resolved]
  - Heart rate increased [Recovered/Resolved]
  - Tachycardia [Recovered/Resolved]
  - Pyrexia [Recovered/Resolved]
  - Therapeutic product effect incomplete [Recovered/Resolved]
  - Drug ineffective [Unknown]
